FAERS Safety Report 8848673 (Version 1)
Quarter: 2012Q4

REPORT INFORMATION
  Report Type: 
  Country: NZ (occurrence: NZ)
  Receive Date: 20121018
  Receipt Date: 20121018
  Transmission Date: 20130627
  Serious: Yes (Other)
  Sender: FDA-Public Use
  Company Number: NZ-PFIZER INC-2012256322

PATIENT
  Age: 18 Year
  Sex: Female

DRUGS (2)
  1. QUINAPRIL HCL [Suspect]
     Dosage: UNK
  2. NITROFURANTOIN [Concomitant]
     Indication: PROPHYLAXIS URINARY TRACT INFECTION
     Dosage: UNK

REACTIONS (2)
  - Oligohydramnios [Unknown]
  - Oligohydramnios [Unknown]
